FAERS Safety Report 4782674-9 (Version None)
Quarter: 2005Q3

REPORT INFORMATION
  Report Type: 
  Country: None (occurrence: None)
  Receive Date: 20050929
  Receipt Date: 20050628
  Transmission Date: 20060218
  Serious: No
  Sender: FDA-Public Use
  Company Number: 409233

PATIENT
  Sex: Female

DRUGS (5)
  1. COREG [Suspect]
     Dosage: 25MG PER DAY
     Route: 048
  2. HYDROCHLOROTHIAZIDE [Concomitant]
  3. COZAAR [Concomitant]
  4. DEMADEX [Concomitant]
  5. ALBUTEROL [Concomitant]

REACTIONS (2)
  - INSOMNIA [None]
  - PRURITUS [None]
